FAERS Safety Report 8499083-1 (Version None)
Quarter: 2012Q2

REPORT INFORMATION
  Report Type: 
  Country: None (occurrence: None)
  Receive Date: 20120405
  Receipt Date: 20100311
  Transmission Date: 20120825
  Serious: Yes (Other)
  Sender: FDA-Public Use
  Company Number: PHEH2010US03088

PATIENT
  Sex: Female

DRUGS (5)
  1. RECLAST [Suspect]
     Dosage: INFUSION
     Dates: start: 20061003
  2. THYROID HORMONES (NO INGREDIENTS/SUBSTANCES) [Concomitant]
  3. VIOKASE 16 [Concomitant]
  4. VITAMINS NOS (VITAMINS NOS0 [Concomitant]
  5. HERBAL EXTRACTS NOS (NOINGREDIENTS/SUBSTANCES) [Concomitant]

REACTIONS (1)
  - ATRIAL FIBRILLATION [None]
